FAERS Safety Report 12121728 (Version 1)
Quarter: 2016Q1

REPORT INFORMATION
  Report Type: Spontaneous
  Country: US (occurrence: US)
  Receive Date: 20160226
  Receipt Date: 20160226
  Transmission Date: 20160526
  Serious: No
  Sender: FDA-Public Use
  Company Number: US-ALLERGAN-1209481US

PATIENT
  Sex: Female

DRUGS (3)
  1. REFRESH OPTIVE [Suspect]
     Active Substance: CARBOXYMETHYLCELLULOSE SODIUM\GLYCERIN
     Indication: ASTHENOPIA
     Dosage: 2 GTT OU, BID
     Route: 047
     Dates: start: 201204
  2. FLONASE [Concomitant]
     Active Substance: FLUTICASONE PROPIONATE
     Indication: SEASONAL ALLERGY
  3. REFRESH OPTIVE [Suspect]
     Active Substance: CARBOXYMETHYLCELLULOSE SODIUM\GLYCERIN
     Indication: ABNORMAL SENSATION IN EYE

REACTIONS (2)
  - Eye irritation [Unknown]
  - Product use issue [Unknown]
